FAERS Safety Report 19566914 (Version 2)
Quarter: 2024Q2

REPORT INFORMATION
  Report Type: Other
  Country: US (occurrence: None)
  Receive Date: 20210716
  Receipt Date: 20240403
  Transmission Date: 20240716
  Serious: Yes (Hospitalization)
  Sender: FDA-Public Use
  Company Number: US-ROCHE-2866133

PATIENT
  Age: 66 Year
  Sex: Female
  Weight: 95.794 kg

DRUGS (5)
  1. OCREVUS [Suspect]
     Active Substance: OCRELIZUMAB
     Indication: Relapsing-remitting multiple sclerosis
     Dosage: (PRESCRIBED AS 300 MG ON DAY 1 AND DAY 15 AND 600 MG ONCE IN 6 MONTHS), DATE OF TREATMENT: 04-MAR-20
     Route: 042
     Dates: start: 20180405
  2. BACLOFEN [Concomitant]
     Active Substance: BACLOFEN
  3. NORTRIPTYLINE [Concomitant]
     Active Substance: NORTRIPTYLINE
  4. DIGOXIN [Concomitant]
     Active Substance: DIGOXIN
  5. BUMEX [Concomitant]
     Active Substance: BUMETANIDE

REACTIONS (9)
  - Heart rate irregular [Not Recovered/Not Resolved]
  - Nodule [Not Recovered/Not Resolved]
  - Infection [Not Recovered/Not Resolved]
  - Decubitus ulcer [Not Recovered/Not Resolved]
  - Housebound [Not Recovered/Not Resolved]
  - Amnesia [Not Recovered/Not Resolved]
  - Memory impairment [Not Recovered/Not Resolved]
  - Muscle spasms [Not Recovered/Not Resolved]
  - Bedridden [Not Recovered/Not Resolved]

NARRATIVE: CASE EVENT DATE: 20201209
